FAERS Safety Report 24667067 (Version 3)
Quarter: 2025Q3

REPORT INFORMATION
  Report Type: Spontaneous
  Country: EU (occurrence: EU)
  Receive Date: 20241126
  Receipt Date: 20250912
  Transmission Date: 20251021
  Serious: Yes (Death, Other)
  Sender: BAYER HEALTHCARE PHARMACEUTICALS INC.
  Company Number: EU-BAYER-2024A167966

PATIENT
  Age: 83 Year
  Sex: Male

DRUGS (3)
  1. NUBEQA [Suspect]
     Active Substance: DAROLUTAMIDE
     Indication: Hormone-refractory prostate cancer
     Dosage: 600 MG, BID
     Route: 048
     Dates: start: 20220706, end: 202408
  2. NUBEQA [Suspect]
     Active Substance: DAROLUTAMIDE
     Indication: Hormone-refractory prostate cancer
     Route: 048
  3. NUBEQA [Suspect]
     Active Substance: DAROLUTAMIDE
     Indication: Hormone-refractory prostate cancer
     Dosage: 300 MG, BID
     Route: 048
     Dates: start: 202408, end: 202409

REACTIONS (11)
  - Duodenal ulcer perforation [Fatal]
  - Arterial rupture [Fatal]
  - Intestinal haemorrhage [Fatal]
  - Angina pectoris [None]
  - Condition aggravated [None]
  - Alopecia [None]
  - Dyspnoea [None]
  - Diarrhoea [None]
  - Faeces discoloured [None]
  - Pain in extremity [None]
  - Therapy interrupted [Unknown]

NARRATIVE: CASE EVENT DATE: 20240908
